FAERS Safety Report 5685122-X (Version None)
Quarter: 2008Q1

REPORT INFORMATION
  Report Type: 
  Country: None (occurrence: None)
  Receive Date: 20080328
  Receipt Date: 20080319
  Transmission Date: 20080703
  Serious: Yes (Other)
  Sender: FDA-Public Use
  Company Number: RU-BOEHRINGER INGELHEIM GMBH, GERMANY-2008-DE-01696GD

PATIENT

DRUGS (1)
  1. DIPYRIDAMOLE AMPOULE [Suspect]
     Indication: STRESS ECHOCARDIOGRAM

REACTIONS (8)
  - ACUTE CORONARY SYNDROME [None]
  - HEADACHE [None]
  - NAUSEA [None]
  - SUPRAVENTRICULAR EXTRASYSTOLES [None]
  - SUPRAVENTRICULAR TACHYCARDIA [None]
  - TREMOR [None]
  - VENTRICULAR EXTRASYSTOLES [None]
  - VENTRICULAR TACHYCARDIA [None]
